FAERS Safety Report 9322750 (Version 2)
Quarter: 2013Q3

REPORT INFORMATION
  Report Type: Spontaneous
  Country: US (occurrence: US)
  Receive Date: 20130601
  Receipt Date: 20130814
  Transmission Date: 20140515
  Serious: No
  Sender: FDA-Public Use
  Company Number: US-ASTRAZENECA-2013SE38706

PATIENT
  Age: 56 Year
  Sex: Female
  Weight: 49.9 kg

DRUGS (21)
  1. NEXIUM [Suspect]
     Indication: GASTROOESOPHAGEAL REFLUX DISEASE
     Route: 048
     Dates: start: 2009
  2. NEXIUM [Suspect]
     Indication: GASTROOESOPHAGEAL REFLUX DISEASE
     Route: 048
     Dates: start: 20090514, end: 20120629
  3. NEXIUM [Suspect]
     Indication: GASTROOESOPHAGEAL REFLUX DISEASE
     Route: 048
     Dates: start: 20100125
  4. PROTONIX [Concomitant]
     Dates: start: 20050708, end: 20081222
  5. RANITIDINE [Concomitant]
     Dates: start: 20090225, end: 20090928
  6. RANITIDINE [Concomitant]
     Dates: start: 20120912
  7. MECLIZINE [Concomitant]
     Indication: DIZZINESS
     Dosage: 25 MG TAKE HALF TO ONE TABLET AS DIRECTED
     Dates: start: 20080725
  8. PREDNISONE [Concomitant]
     Dates: start: 20080626
  9. IBUPROFEN [Concomitant]
     Dates: start: 20080626
  10. CILOSTAZOL [Concomitant]
     Indication: POOR PERIPHERAL CIRCULATION
     Dates: start: 20080623
  11. LYRICA [Concomitant]
     Dates: start: 20081103
  12. TRAMADOL HCL [Concomitant]
     Indication: PAIN
     Dates: start: 20090504
  13. SALSALATE [Concomitant]
     Indication: INFLAMMATION
     Dates: start: 20090717
  14. OMEPRAZOLE [Concomitant]
     Dates: start: 20091221
  15. PROMETHAZINE [Concomitant]
     Indication: NAUSEA
     Dates: start: 20060301
  16. AMITRIPTYLINE [Concomitant]
     Dosage: 25 MG BY MOUTH IN THE EVENING AS DIRECTED06012006
     Dates: start: 20060106
  17. ZOLOFT [Concomitant]
     Dates: start: 20060301
  18. FOSAMAX [Concomitant]
     Dates: start: 20060301
  19. PROPANOLOL [Concomitant]
     Dates: start: 20060301
  20. HYDROCODONE/APAP [Concomitant]
     Indication: PAIN
     Dosage: 7.5/500 MG, EVERY SIX HOURS AS NEEDED
     Dates: start: 20061106
  21. CARISOPRODOL [Concomitant]
     Indication: MUSCLE RELAXANT THERAPY
     Dates: start: 20061106

REACTIONS (8)
  - Osteoporosis [Unknown]
  - Bone density decreased [Unknown]
  - Osteopenia [Unknown]
  - Bone disorder [Unknown]
  - Multiple fractures [Unknown]
  - Back disorder [Unknown]
  - Arthritis [Unknown]
  - Movement disorder [Unknown]
